FAERS Safety Report 10427284 (Version 8)
Quarter: 2015Q2

REPORT INFORMATION
  Report Type: Report from Study
  Country: JP (occurrence: JP)
  Receive Date: 20140903
  Receipt Date: 20150609
  Transmission Date: 20150821
  Serious: Yes (Death, Life-Threatening, Hospitalization, Other)
  Sender: FDA-Public Use
  Company Number: JP-ALEXION PHARMACEUTICALS INC-A201401541

PATIENT

DRUGS (7)
  1. PREDNISOLONE                       /00016204/ [Suspect]
     Active Substance: PREDNISOLONE
     Indication: PRODUCT USED FOR UNKNOWN INDICATION
     Dosage: 30 MG, DAILY
     Route: 065
     Dates: start: 20130903
  2. PREDNISOLONE /00016204/ [Suspect]
     Active Substance: PREDNISOLONE
     Dosage: 25 MG, DAILY
     Route: 065
     Dates: start: 20141011
  3. SOLIRIS [Suspect]
     Active Substance: ECULIZUMAB
     Indication: PAROXYSMAL NOCTURNAL HAEMOGLOBINURIA
     Dosage: 600 MG, QW
     Route: 042
     Dates: start: 20111107
  4. PREDNISOLONE                       /00016204/ [Suspect]
     Active Substance: PREDNISOLONE
     Dosage: 30 MG, DAILY
     Route: 065
  5. PREDNISOLONE                       /00016204/ [Suspect]
     Active Substance: PREDNISOLONE
     Dosage: 20 MG, DAILY
     Route: 065
     Dates: start: 20141013, end: 20141109
  6. SOLIRIS [Suspect]
     Active Substance: ECULIZUMAB
     Dosage: 900 MG, Q2W
     Route: 042
     Dates: start: 20111205, end: 20141103
  7. IMURAN [Suspect]
     Active Substance: AZATHIOPRINE
     Indication: PRODUCT USED FOR UNKNOWN INDICATION
     Dosage: 25 MG, QD
     Route: 065
     Dates: start: 20141013, end: 20141109

REACTIONS (14)
  - Haemolysis [Unknown]
  - Septic shock [Fatal]
  - Bacterial sepsis [Fatal]
  - Colitis ulcerative [Fatal]
  - Condition aggravated [Unknown]
  - Blood lactate dehydrogenase increased [Unknown]
  - Colon cancer [Not Recovered/Not Resolved]
  - Haemoglobin decreased [Unknown]
  - Cytomegalovirus infection [Fatal]
  - Colitis ulcerative [Unknown]
  - Malaise [Unknown]
  - Infectious colitis [Fatal]
  - Pyrexia [Unknown]
  - Aeromona infection [Unknown]

NARRATIVE: CASE EVENT DATE: 20130723
